FAERS Safety Report 17641408 (Version 1)
Quarter: 2020Q2

REPORT INFORMATION
  Report Type: Report from Study
  Country: US (occurrence: US)
  Receive Date: 20200408
  Receipt Date: 20200408
  Transmission Date: 20200713
  Serious: No
  Sender: FDA-Public Use
  Company Number: NVSC2020US090254

PATIENT
  Age: 37 Year
  Sex: Female

DRUGS (1)
  1. ENTRESTO [Suspect]
     Active Substance: SACUBITRIL\VALSARTAN
     Indication: CARDIAC FAILURE CHRONIC
     Dosage: 200 MG, BID
     Route: 048
     Dates: start: 202001

REACTIONS (4)
  - Hypotension [Not Recovered/Not Resolved]
  - Fatigue [Unknown]
  - Dizziness postural [Unknown]
  - Dizziness [Unknown]

NARRATIVE: CASE EVENT DATE: 202003
